FAERS Safety Report 18338033 (Version 1)
Quarter: 2020Q4

REPORT INFORMATION
  Report Type: Spontaneous
  Country: JP (occurrence: JP)
  Receive Date: 20201002
  Receipt Date: 20201002
  Transmission Date: 20210113
  Serious: Yes (Other)
  Sender: FDA-Public Use
  Company Number: JP-GLAXOSMITHKLINE-JP2020194439

PATIENT
  Sex: Female

DRUGS (3)
  1. PASETOCIN [Concomitant]
     Active Substance: AMOXICILLIN
     Dosage: UNK
  2. AUGMENTIN [Suspect]
     Active Substance: AMOXICILLIN\CLAVULANATE POTASSIUM
     Indication: PNEUMONIA
     Dosage: UNK
     Route: 048
  3. SULTANOL [Suspect]
     Active Substance: ALBUTEROL SULFATE
     Dosage: 200 ?G, QID
     Route: 055

REACTIONS (4)
  - Pneumonia [Unknown]
  - Cough [Unknown]
  - Therapy cessation [Unknown]
  - Product use in unapproved indication [Unknown]
